FAERS Safety Report 16662679 (Version 1)
Quarter: 2019Q3

REPORT INFORMATION
  Report Type: Report from Study
  Country: US (occurrence: US)
  Receive Date: 20190802
  Receipt Date: 20190802
  Transmission Date: 20191004
  Serious: No
  Sender: FDA-Public Use
  Company Number: US-EXELIXIS-CABO-19018704

PATIENT
  Age: 65 Year
  Sex: Male

DRUGS (2)
  1. CABOMETYX [Suspect]
     Active Substance: CABOZANTINIB S-MALATE
     Indication: RENAL CELL CARCINOMA
     Dosage: 40 MG, QD
     Route: 048
     Dates: start: 20181206
  2. CABOMETYX [Suspect]
     Active Substance: CABOZANTINIB S-MALATE
     Dosage: 60 MG, QD (PM WITHOUT FOOD)
     Route: 048
     Dates: start: 20190107

REACTIONS (5)
  - Stomatitis [Recovered/Resolved]
  - Productive cough [Unknown]
  - Diarrhoea [Unknown]
  - Constipation [Unknown]
  - Dysphonia [Unknown]

NARRATIVE: CASE EVENT DATE: 201812
